FAERS Safety Report 5378449-2 (Version None)
Quarter: 2007Q3

REPORT INFORMATION
  Report Type: 
  Country: None (occurrence: None)
  Receive Date: 20070705
  Receipt Date: 20070702
  Transmission Date: 20080115
  Serious: Yes (Hospitalization)
  Sender: FDA-Public Use
  Company Number: NLWYE591407MAY07

PATIENT
  Sex: Female

DRUGS (6)
  1. EFFEXOR XR [Suspect]
     Indication: DEPRESSION
     Route: 048
     Dates: start: 20070411, end: 20070401
  2. PANTOZOL [Concomitant]
     Indication: HELICOBACTER GASTRITIS
     Dates: end: 20070413
  3. TEMAZEPAM [Concomitant]
     Indication: INSOMNIA
  4. SIMVASTATIN [Concomitant]
     Indication: HYPERCHOLESTEROLAEMIA
  5. HYDROCHLOROTHIAZIDE [Interacting]
     Indication: HYPERTENSION
     Dosage: PROBABLY 12.5 MG 2 TIMES PER DAY (IN STEAD OF THE PRESCRIBED 12.5 MG 1 TIME PER DAY)
  6. BISOPROLOL [Concomitant]
     Indication: HYPERTENSION

REACTIONS (4)
  - DELIRIUM [None]
  - DRUG INTERACTION [None]
  - HYPONATRAEMIA [None]
  - URINARY RETENTION [None]
